FAERS Safety Report 12787490 (Version 1)
Quarter: 2016Q3

REPORT INFORMATION
  Report Type: Spontaneous
  Country: JP (occurrence: JP)
  Receive Date: 20160928
  Receipt Date: 20160928
  Transmission Date: 20161109
  Serious: Yes (Other)
  Sender: FDA-Public Use
  Company Number: JP-OTSUKA-JP-2011-10275

PATIENT
  Age: 85 Year
  Sex: Female

DRUGS (5)
  1. BIOFERMIN R [Concomitant]
     Active Substance: BACILLUS SUBTILIS\LACTOBACILLUS ACIDOPHILUS\STREPTOCOCCUS FAECAIS
     Indication: PROPHYLAXIS AGAINST DIARRHOEA
     Dosage: 6 MG, TID
     Route: 048
     Dates: start: 20110210
  2. PLETAAL TABLETS 100MG [Suspect]
     Active Substance: CILOSTAZOL
     Indication: GANGRENE
     Dosage: 100 MG, BID
     Route: 048
     Dates: start: 20110210, end: 20110214
  3. CEFZON [Concomitant]
     Active Substance: CEFDINIR
     Indication: GANGRENE
     Dosage: 100 MG, TID
     Route: 048
     Dates: start: 20110210
  4. CALONAL [Concomitant]
     Active Substance: ACETAMINOPHEN
     Indication: PRODUCT USED FOR UNKNOWN INDICATION
     Dosage: UNK, PRN
     Route: 048
     Dates: start: 20110210
  5. DAONIL [Concomitant]
     Active Substance: GLYBURIDE
     Indication: DIABETES MELLITUS
     Dosage: UNK
     Route: 048

REACTIONS (2)
  - Altered state of consciousness [Recovered/Resolved]
  - Speech disorder [Recovered/Resolved]

NARRATIVE: CASE EVENT DATE: 20110210
